FAERS Safety Report 14641645 (Version 3)
Quarter: 2019Q2

REPORT INFORMATION
  Report Type: Spontaneous
  Country: SE (occurrence: SE)
  Receive Date: 20180315
  Receipt Date: 20190425
  Transmission Date: 20190711
  Serious: Yes (Life-Threatening, Other)
  Sender: FDA-Public Use
  Company Number: SE-ELI_LILLY_AND_COMPANY-SE201803003023

PATIENT
  Age: 54 Year
  Sex: Male
  Weight: 82.5 kg

DRUGS (5)
  1. MELATONIN [Concomitant]
     Active Substance: MELATONIN
     Indication: PRODUCT USED FOR UNKNOWN INDICATION
     Dosage: 5 MG, UNK
  2. FLUNITRAZEPAM MYLAN [Concomitant]
     Active Substance: FLUNITRAZEPAM
     Indication: PRODUCT USED FOR UNKNOWN INDICATION
     Dosage: 1 MG, UNK
  3. METFORMIN [Concomitant]
     Active Substance: METFORMIN HYDROCHLORIDE
     Indication: PRODUCT USED FOR UNKNOWN INDICATION
     Dosage: UNK
     Dates: start: 20170619
  4. TRULICITY [Suspect]
     Active Substance: DULAGLUTIDE
     Indication: PRODUCT USED FOR UNKNOWN INDICATION
     Dosage: 1.5 MG, WEEKLY (1/W)
     Route: 065
     Dates: start: 20170619
  5. METFORMIN [Concomitant]
     Active Substance: METFORMIN HYDROCHLORIDE
     Dosage: 500 MG, BID

REACTIONS (11)
  - Blood glucose decreased [Unknown]
  - Feeling of despair [Unknown]
  - Acute polyneuropathy [Unknown]
  - Autonomic nervous system imbalance [Unknown]
  - Diabetic neuropathy [Unknown]
  - Decreased appetite [Unknown]
  - Constipation [Unknown]
  - Anxiety [Unknown]
  - Tinnitus [Unknown]
  - Tremor [Unknown]
  - Nausea [Unknown]
